FAERS Safety Report 6212756-6 (Version None)
Quarter: 2009Q2

REPORT INFORMATION
  Report Type: 
  Country: None (occurrence: None)
  Receive Date: 20090603
  Receipt Date: 20090529
  Transmission Date: 20091009
  Serious: Yes (Hospitalization, Other)
  Sender: FDA-Public Use
  Company Number: DE-BRISTOL-MYERS SQUIBB COMPANY-14521074

PATIENT
  Age: 65 Year
  Sex: Male
  Weight: 58 kg

DRUGS (2)
  1. CISPLATIN [Suspect]
     Indication: GASTROOESOPHAGEAL CANCER
     Dosage: 80 MG/M2, ON DAY 1 OF CYCLE; TEMPORARILY DISCONTINUED ON 27JAN09
     Route: 042
     Dates: start: 20090127
  2. XELODA [Suspect]
     Indication: GASTROOESOPHAGEAL CANCER
     Dosage: ON DAY 1-15;  FORMULATION = TABLET; LAST INF- 31JAN09; TEMPORARILY DISCONTINUED ON 04FEB09
     Route: 048
     Dates: start: 20090127

REACTIONS (1)
  - HYPERGLYCAEMIA [None]
